FAERS Safety Report 11127361 (Version 1)
Quarter: 2015Q2

REPORT INFORMATION
  Report Type: Spontaneous
  Country: US (occurrence: US)
  Receive Date: 20150521
  Receipt Date: 20150521
  Transmission Date: 20150821
  Serious: Yes (Other)
  Sender: FDA-Public Use
  Company Number: US-AMGEN-USASP2015048062

PATIENT
  Age: 84 Year
  Sex: Female

DRUGS (1)
  1. ENBREL [Suspect]
     Active Substance: ETANERCEPT
     Indication: RHEUMATOID ARTHRITIS
     Dosage: 50 MG, QWK
     Route: 065
     Dates: start: 20000101

REACTIONS (7)
  - Musculoskeletal disorder [Not Recovered/Not Resolved]
  - Squamous cell carcinoma [Recovered/Resolved]
  - Musculoskeletal stiffness [Recovered/Resolved]
  - Mobility decreased [Recovered/Resolved]
  - Condition aggravated [Recovered/Resolved]
  - Impaired self-care [Recovered/Resolved]
  - Inflammation [Recovered/Resolved]

NARRATIVE: CASE EVENT DATE: 2011
